FAERS Safety Report 12394403 (Version 1)
Quarter: 2016Q2

REPORT INFORMATION
  Report Type: Spontaneous
  Country: US (occurrence: US)
  Receive Date: 20160523
  Receipt Date: 20160523
  Transmission Date: 20160815
  Serious: No
  Sender: FDA-Public Use
  Company Number: US-TARO-2015TAR00521

PATIENT
  Age: 8 Year
  Sex: Male
  Weight: 40.82 kg

DRUGS (2)
  1. CHILDRENS CETIRIZINE HYDROCHLORIDE SUGAR FREE GRAPE [Suspect]
     Active Substance: CETIRIZINE HYDROCHLORIDE
     Dosage: 1.5 TSP, 1X/DAY
     Route: 048
     Dates: start: 20150531, end: 20150531
  2. CHILDRENS CETIRIZINE HYDROCHLORIDE SUGAR FREE GRAPE [Suspect]
     Active Substance: CETIRIZINE HYDROCHLORIDE
     Indication: HYPERSENSITIVITY
     Dosage: 1 TSP, 1X/DAY
     Route: 048
     Dates: start: 201505, end: 201505

REACTIONS (2)
  - Non-cardiac chest pain [Not Recovered/Not Resolved]
  - Papule [Unknown]

NARRATIVE: CASE EVENT DATE: 201505
